FAERS Safety Report 9557650 (Version 1)
Quarter: 2013Q3

REPORT INFORMATION
  Report Type: Spontaneous
  Country: US (occurrence: None)
  Receive Date: 20130726
  Receipt Date: 20130726
  Transmission Date: 20140515
  Serious: Yes (Hospitalization)
  Sender: FDA-Public Use
  Company Number: UTC-029171

PATIENT
  Age: 2 Year
  Sex: Male
  Weight: 4.82 kg

DRUGS (3)
  1. REMODULIN [Suspect]
     Dosage: 240.48 UG/KG (0.167 UG/KG, I IN 1 MIN), SUBCUTANEOUS
     Route: 058
     Dates: start: 20110513
  2. REMODULIN [Suspect]
     Dosage: 240.48 UG/KG (0.167 UG/KG, I IN 1 MIN), SUBCUTANEOUS
     Route: 058
     Dates: start: 20110513
  3. REVATIO (SILDENAFIL CITRATE) [Concomitant]

REACTIONS (1)
  - Pulmonary hypertension [None]
